FAERS Safety Report 13347708 (Version 1)
Quarter: 2017Q1

REPORT INFORMATION
  Report Type: Spontaneous
  Country: US (occurrence: US)
  Receive Date: 20170317
  Receipt Date: 20170317
  Transmission Date: 20170428
  Serious: Yes (Other)
  Sender: FDA-Public Use
  Company Number: US-ALLERGAN-1710018US

PATIENT
  Sex: Female
  Weight: 68.27 kg

DRUGS (1)
  1. LINZESS [Suspect]
     Active Substance: LINACLOTIDE
     Indication: CONSTIPATION
     Dosage: 290 ?G, UNK

REACTIONS (3)
  - Diarrhoea haemorrhagic [Unknown]
  - Incorrect dose administered [Unknown]
  - Off label use [Unknown]
